FAERS Safety Report 18356970 (Version 3)
Quarter: 2020Q4

REPORT INFORMATION
  Report Type: Spontaneous
  Country: JP (occurrence: JP)
  Receive Date: 20201007
  Receipt Date: 20201016
  Transmission Date: 20210114
  Serious: No
  Sender: FDA-Public Use
  Company Number: JP-JNJFOC-20200949185

PATIENT
  Age: 8 Decade
  Sex: Female

DRUGS (3)
  1. REMINYL [Suspect]
     Active Substance: GALANTAMINE
     Route: 048
     Dates: start: 20200129
  2. REMINYL [Suspect]
     Active Substance: GALANTAMINE
     Indication: PRODUCT USED FOR UNKNOWN INDICATION
     Route: 048
  3. REMINYL [Suspect]
     Active Substance: GALANTAMINE
     Route: 048

REACTIONS (2)
  - Inappropriate schedule of product administration [Unknown]
  - Off label use [Unknown]
